FAERS Safety Report 15249955 (Version 1)
Quarter: 2018Q3

REPORT INFORMATION
  Report Type: Spontaneous
  Country: US (occurrence: US)
  Receive Date: 20180807
  Receipt Date: 20180807
  Transmission Date: 20181010
  Serious: No
  Sender: FDA-Public Use
  Company Number: US-GLAXOSMITHKLINE-US2018137480

PATIENT
  Sex: Female

DRUGS (1)
  1. INCRUSE ELLIPTA [Suspect]
     Active Substance: UMECLIDINIUM BROMIDE
     Indication: ASTHMA
     Dosage: 1 PUFF(S), 1D
     Dates: start: 2017

REACTIONS (4)
  - Labelled drug-disease interaction medication error [Unknown]
  - Dyspnoea [Recovered/Resolved]
  - Underdose [Unknown]
  - Inappropriate schedule of drug administration [Unknown]
